FAERS Safety Report 19086146 (Version 1)
Quarter: 2021Q2

REPORT INFORMATION
  Report Type: Spontaneous
  Country: US (occurrence: US)
  Receive Date: 20210402
  Receipt Date: 20210402
  Transmission Date: 20210717
  Serious: No
  Sender: FDA-Public Use
  Company Number: US-ALLERGAN-2021908US

PATIENT
  Sex: Female

DRUGS (1)
  1. OXYTROL [Suspect]
     Active Substance: OXYBUTYNIN
     Indication: HYPERTONIC BLADDER
     Dosage: 1 PATCH TO CHANGE EVERY 4 DAYS
     Route: 062

REACTIONS (5)
  - Off label use [Unknown]
  - Therapeutic response decreased [Unknown]
  - Product use complaint [Unknown]
  - Incorrect dose administered [Unknown]
  - Product adhesion issue [Unknown]
